FAERS Safety Report 20944960 (Version 1)
Quarter: 2022Q2

REPORT INFORMATION
  Report Type: Spontaneous
  Country: US (occurrence: None)
  Receive Date: 20220609
  Receipt Date: 20220609
  Transmission Date: 20220721
  Serious: Yes (Other)
  Sender: FDA-Public Use
  Company Number: None

PATIENT
  Age: 64 Year
  Sex: Female
  Weight: 57.6 kg

DRUGS (1)
  1. ERIBULIN [Suspect]
     Active Substance: ERIBULIN
     Indication: Breast cancer metastatic
     Dosage: OTHER FREQUENCY : CHEMOTHERAPY CYCLE;?
     Route: 040

REACTIONS (5)
  - Dizziness [None]
  - Dizziness [None]
  - Hypopnoea [None]
  - Dyspnoea [None]
  - Infusion related reaction [None]

NARRATIVE: CASE EVENT DATE: 20220420
